FAERS Safety Report 6908406-3 (Version None)
Quarter: 2010Q3

REPORT INFORMATION
  Report Type: 
  Country: None (occurrence: None)
  Receive Date: 20100805
  Receipt Date: 20100728
  Transmission Date: 20110219
  Serious: Yes (Other)
  Sender: FDA-Public Use
  Company Number: US-BAYER-201018518BCC

PATIENT
  Age: 29 Year
  Sex: Female
  Weight: 100 kg

DRUGS (1)
  1. MIDOL MENSTRUAL COMPLETE CAPLETS [Suspect]
     Indication: DYSMENORRHOEA
     Dosage: AS USED: 2 DF  UNIT DOSE: 2 DF
     Route: 048
     Dates: start: 20100727

REACTIONS (2)
  - ABDOMINAL DISTENSION [None]
  - DYSMENORRHOEA [None]
